FAERS Safety Report 7921859-7 (Version None)
Quarter: 2011Q4

REPORT INFORMATION
  Report Type: 
  Country: None (occurrence: None)
  Receive Date: 20111117
  Receipt Date: 20111115
  Transmission Date: 20120403
  Serious: No
  Sender: FDA-Public Use
  Company Number: US-B.I. PHARMACEUTICALS,INC./RIDGEFIELD-2011-BP-26269BP

PATIENT
  Sex: Female

DRUGS (4)
  1. CLARITIN [Concomitant]
     Indication: SEASONAL ALLERGY
     Route: 048
  2. PROVENTIL [Concomitant]
     Indication: DYSPNOEA
     Route: 055
  3. SPIRIVA [Suspect]
     Indication: CHRONIC OBSTRUCTIVE PULMONARY DISEASE
     Dosage: 18 MCG
     Route: 055
     Dates: start: 20110701
  4. CATARACT EYE DROPS [Concomitant]
     Indication: CATARACT OPERATION
     Dates: start: 20110101

REACTIONS (1)
  - DRUG INEFFECTIVE [None]
